FAERS Safety Report 5612465-8 (Version None)
Quarter: 2008Q1

REPORT INFORMATION
  Report Type: 
  Country: None (occurrence: None)
  Receive Date: 20080131
  Receipt Date: 20080131
  Transmission Date: 20080703
  Serious: No
  Sender: FDA-Public Use
  Company Number: None

PATIENT
  Age: 36 Year
  Sex: Male
  Weight: 83.9154 kg

DRUGS (2)
  1. PEPCID AC [Suspect]
     Indication: PH BODY FLUID DECREASED
     Dates: start: 20061020, end: 20071115
  2. FAMOTIDINE [Suspect]

REACTIONS (5)
  - DRUG EFFECT DECREASED [None]
  - HAIR DISORDER [None]
  - PHARMACEUTICAL PRODUCT COMPLAINT [None]
  - THERMAL BURN [None]
  - WRONG TECHNIQUE IN DRUG USAGE PROCESS [None]
